FAERS Safety Report 22820628 (Version 2)
Quarter: 2024Q3

REPORT INFORMATION
  Report Type: Spontaneous
  Country: US (occurrence: US)
  Receive Date: 20230814
  Receipt Date: 20240717
  Transmission Date: 20241017
  Serious: Yes (Hospitalization)
  Sender: MYLAN
  Company Number: US-MYLANLABS-2023M1084590

PATIENT
  Age: 25 Year
  Sex: Female

DRUGS (22)
  1. IFOSFAMIDE [Suspect]
     Active Substance: IFOSFAMIDE
     Indication: Ewing^s sarcoma
     Dosage: UNK
     Route: 065
  2. IFOSFAMIDE [Suspect]
     Active Substance: IFOSFAMIDE
     Indication: Sarcoma
  3. IFOSFAMIDE [Suspect]
     Active Substance: IFOSFAMIDE
     Indication: Bone cancer
  4. HALOPERIDOL [Suspect]
     Active Substance: HALOPERIDOL
     Indication: Encephalopathy
     Dosage: UNK
     Route: 065
  5. HALOPERIDOL [Suspect]
     Active Substance: HALOPERIDOL
     Indication: Neurotoxicity
  6. OLANZAPINE [Suspect]
     Active Substance: OLANZAPINE
     Indication: Encephalopathy
     Dosage: UNK
     Route: 065
  7. OLANZAPINE [Suspect]
     Active Substance: OLANZAPINE
     Indication: Neurotoxicity
  8. LORAZEPAM [Suspect]
     Active Substance: LORAZEPAM
     Indication: Encephalopathy
     Dosage: UNK
     Route: 065
  9. LORAZEPAM [Suspect]
     Active Substance: LORAZEPAM
     Indication: Neurotoxicity
  10. FILGRASTIM [Concomitant]
     Active Substance: FILGRASTIM
     Indication: Product used for unknown indication
     Dosage: UNK
     Route: 065
  11. ETOPOSIDE [Concomitant]
     Active Substance: ETOPOSIDE
     Indication: Ewing^s sarcoma
     Dosage: UNK
     Route: 065
  12. ETOPOSIDE [Concomitant]
     Active Substance: ETOPOSIDE
     Indication: Sarcoma
  13. ETOPOSIDE [Concomitant]
     Active Substance: ETOPOSIDE
     Indication: Bone cancer
  14. VINCRISTINE [Concomitant]
     Active Substance: VINCRISTINE
     Indication: Ewing^s sarcoma
     Dosage: UNK
     Route: 065
  15. VINCRISTINE [Concomitant]
     Active Substance: VINCRISTINE
     Indication: Sarcoma
  16. VINCRISTINE [Concomitant]
     Active Substance: VINCRISTINE
     Indication: Bone cancer
  17. DOXORUBICIN [Concomitant]
     Active Substance: DOXORUBICIN
     Indication: Ewing^s sarcoma
     Dosage: UNK
     Route: 065
  18. DOXORUBICIN [Concomitant]
     Active Substance: DOXORUBICIN
     Indication: Sarcoma
  19. DOXORUBICIN [Concomitant]
     Active Substance: DOXORUBICIN
     Indication: Bone cancer
  20. CYCLOPHOSPHAMIDE [Concomitant]
     Active Substance: CYCLOPHOSPHAMIDE
     Indication: Ewing^s sarcoma
     Dosage: UNK
     Route: 065
  21. CYCLOPHOSPHAMIDE [Concomitant]
     Active Substance: CYCLOPHOSPHAMIDE
     Indication: Sarcoma
  22. CYCLOPHOSPHAMIDE [Concomitant]
     Active Substance: CYCLOPHOSPHAMIDE
     Indication: Bone cancer

REACTIONS (4)
  - Encephalopathy [Recovered/Resolved]
  - Neurotoxicity [Recovered/Resolved]
  - Drug ineffective for unapproved indication [Unknown]
  - Off label use [Unknown]
